FAERS Safety Report 7851529-5 (Version None)
Quarter: 2011Q4

REPORT INFORMATION
  Report Type: 
  Country: None (occurrence: None)
  Receive Date: 20111017
  Receipt Date: 20111007
  Transmission Date: 20120403
  Serious: Yes (Other)
  Sender: FDA-Public Use
  Company Number: 2011029977

PATIENT
  Sex: Female

DRUGS (22)
  1. VENTOLIN [Concomitant]
  2. LEVOTHYROXINE SODIUM [Concomitant]
  3. SAVELLA [Concomitant]
  4. LOSARTAN POTASSIUM [Concomitant]
  5. GABAPENTIN [Concomitant]
  6. METAXALONE [Concomitant]
  7. CIPRO [Concomitant]
  8. PREDNISONE TAB [Concomitant]
  9. VOLTAREN [Concomitant]
  10. ASTEPRO [Concomitant]
  11. TYLENOL ARTHRITIS (PARACETAMOL) [Concomitant]
  12. HIZENTRA [Suspect]
     Indication: IMMUNODEFICIENCY COMMON VARIABLE
     Dosage: (50 ML 1X/WEEK SUBCUTANEOUS) ; (25 ML 1X/WEEK SUBCUTANEOUS)
     Route: 058
     Dates: start: 20110601
  13. HIZENTRA [Suspect]
     Indication: HYPOGAMMAGLOBULINAEMIA
     Dosage: (50 ML 1X/WEEK SUBCUTANEOUS) ; (25 ML 1X/WEEK SUBCUTANEOUS)
     Route: 058
     Dates: start: 20110601
  14. HIZENTRA [Suspect]
     Indication: PRIMARY IMMUNODEFICIENCY SYNDROME
     Dosage: (50 ML 1X/WEEK SUBCUTANEOUS) ; (25 ML 1X/WEEK SUBCUTANEOUS)
     Route: 058
     Dates: start: 20110601
  15. OMEPRAZOLE [Concomitant]
  16. SINGULAIR [Concomitant]
  17. SUDAFED 24 (PSEUDOEPHEDRINE HYDROCHLORIDE) [Concomitant]
  18. FLUTICASONE PROPIONATE [Concomitant]
  19. ALBUTEROL [Concomitant]
  20. VITAMIN D [Concomitant]
  21. METHOCARBAMOL [Concomitant]
  22. XYZAL [Concomitant]

REACTIONS (4)
  - RECTAL HAEMORRHAGE [None]
  - INFUSION SITE HAEMORRHAGE [None]
  - HAEMORRHOIDS [None]
  - INFUSION SITE HAEMATOMA [None]
